FAERS Safety Report 6277753-3 (Version None)
Quarter: 2009Q3

REPORT INFORMATION
  Report Type: 
  Country: None (occurrence: None)
  Receive Date: 20090722
  Receipt Date: 20090715
  Transmission Date: 20100115
  Serious: Yes (Hospitalization)
  Sender: FDA-Public Use
  Company Number: B0584075A

PATIENT
  Sex: Female
  Weight: 35 kg

DRUGS (10)
  1. RETROVIR [Suspect]
     Indication: HIV INFECTION
     Dosage: 100MG THREE TIMES PER DAY
     Route: 048
     Dates: start: 20090301
  2. TELZIR [Suspect]
     Indication: HIV INFECTION
     Dosage: 1400MG TWICE PER DAY
     Route: 048
     Dates: start: 20090301
  3. BACTRIM [Suspect]
     Indication: PROPHYLAXIS
     Dosage: 1UNIT ALTERNATE DAYS
     Route: 048
     Dates: start: 20090301
  4. ISENTRESS [Suspect]
     Indication: HIV INFECTION
     Dosage: 800MG PER DAY
     Route: 048
     Dates: start: 20090301
  5. NORVIR [Suspect]
     Indication: HIV INFECTION
     Dosage: 100MG TWICE PER DAY
     Route: 048
     Dates: start: 20090301
  6. KEPPRA [Suspect]
     Indication: DRUG USE FOR UNKNOWN INDICATION
     Dosage: 1G PER DAY
     Route: 048
     Dates: start: 20090301
  7. FUZEON [Concomitant]
     Indication: HIV INFECTION
     Dosage: 2INJ PER DAY
     Route: 058
  8. VITAMIN B-12 [Concomitant]
     Dosage: 1AMP PER DAY
     Route: 048
  9. IMOVANE [Concomitant]
     Dosage: 1TAB PER DAY
     Route: 048
  10. ACYCLOVIR [Concomitant]

REACTIONS (3)
  - ANAEMIA MACROCYTIC [None]
  - CONVULSION [None]
  - THROMBOCYTOPENIA [None]
